FAERS Safety Report 15648240 (Version 1)
Quarter: 2018Q4

REPORT INFORMATION
  Report Type: Report from Study
  Country: PK (occurrence: PK)
  Receive Date: 20181122
  Receipt Date: 20181122
  Transmission Date: 20190205
  Serious: Yes (Death)
  Sender: FDA-Public Use
  Company Number: PHHY2018PK160667

PATIENT
  Sex: Male
  Weight: 68 kg

DRUGS (1)
  1. TASIGNA [Suspect]
     Active Substance: NILOTINIB
     Indication: CHRONIC MYELOID LEUKAEMIA
     Dosage: 600 MG, BID (2 IN MORNING AND 1 IN EVENING)
     Route: 048
     Dates: start: 20170613, end: 20180320

REACTIONS (3)
  - Asthenia [Fatal]
  - Bone marrow failure [Fatal]
  - Bone pain [Fatal]
